FAERS Safety Report 5918655-9 (Version None)
Quarter: 2008Q4

REPORT INFORMATION
  Report Type: 
  Country: None (occurrence: None)
  Receive Date: 20081015
  Receipt Date: 20080417
  Transmission Date: 20090506
  Serious: No
  Sender: FDA-Public Use
  Company Number: US-ASTRAZENECA-2008UW07964

PATIENT
  Age: 46 Year
  Sex: Male

DRUGS (5)
  1. SYMBICORT [Suspect]
     Indication: EMPHYSEMA
     Dosage: 160/4.5 MCG
     Route: 055
  2. DIOVAN [Concomitant]
  3. XOPENEX [Concomitant]
  4. SPIRIVA [Concomitant]
  5. NORVASC [Concomitant]

REACTIONS (1)
  - WHITE BLOOD CELL COUNT ABNORMAL [None]
